FAERS Safety Report 21153929 (Version 1)
Quarter: 2022Q3

REPORT INFORMATION
  Report Type: Spontaneous
  Country: GR (occurrence: GR)
  Receive Date: 20220801
  Receipt Date: 20220801
  Transmission Date: 20221026
  Serious: Yes (Other)
  Sender: FDA-Public Use
  Company Number: GR-AMGEN-GRCSP2022126921

PATIENT
  Age: 17 Year
  Sex: Male

DRUGS (3)
  1. ADALIMUMAB [Suspect]
     Active Substance: ADALIMUMAB
     Indication: Crohn^s disease
     Dosage: 40 MILLIGRAM, Q2WK
     Route: 065
  2. AZATHIOPRINE [Concomitant]
     Active Substance: AZATHIOPRINE
     Dosage: 100 MILLIGRAM, QD
     Route: 065
  3. COVID-19 vaccine [Concomitant]

REACTIONS (5)
  - Thrombosis with thrombocytopenia syndrome [Unknown]
  - Crohn^s disease [Unknown]
  - Myalgia [Unknown]
  - Fatigue [Unknown]
  - Pyrexia [Unknown]
